FAERS Safety Report 5880211-9 (Version None)
Quarter: 2008Q3

REPORT INFORMATION
  Report Type: 
  Country: None (occurrence: None)
  Receive Date: 20080910
  Receipt Date: 20080910
  Transmission Date: 20090109
  Serious: Yes (Death, Congenital Anomaly)
  Sender: FDA-Public Use
  Company Number: None

PATIENT
  Age: 22 Year
  Sex: Female
  Weight: 57.6068 kg

DRUGS (2)
  1. LEXAPRO [Suspect]
     Indication: DEPRESSION
     Dosage: 10MG ONCE DAILY PO
     Route: 048
     Dates: start: 20021228, end: 20031109
  2. ZOLOFT [Suspect]
     Indication: DEPRESSION
     Dosage: 50MG ONCE DAILY PO
     Route: 048
     Dates: start: 20031110, end: 20080103

REACTIONS (3)
  - DRUG EXPOSURE DURING PREGNANCY [None]
  - MIGRAINE [None]
  - PREGNANCY [None]
